FAERS Safety Report 8457212 (Version 11)
Quarter: 2012Q4

REPORT INFORMATION
  Report Type: Report from Study
  Country: JP (occurrence: JP)
  Receive Date: 20120313
  Receipt Date: 20121228
  Transmission Date: 20130627
  Serious: Yes (Hospitalization, Other)
  Sender: FDA-Public Use
  Company Number: JP-VERTEX PHARMACEUTICALS INC.-AE-2012-003528

PATIENT
  Age: 65 Year
  Sex: Male

DRUGS (10)
  1. VX-950 (TELAPREVIR) [Suspect]
     Indication: HEPATITIS C
     Dosage: 2250 mg, qd
     Route: 048
     Dates: start: 20120117, end: 20120228
  2. REBETOL [Suspect]
     Indication: CHRONIC HEPATITIS C
     Route: 048
     Dates: start: 20120117, end: 20120206
  3. REBETOL [Suspect]
     Dosage: 400 mg, UNK
     Route: 048
     Dates: start: 20120207, end: 20120213
  4. REBETOL [Suspect]
     Dosage: 200 mg, UNK
     Route: 048
     Dates: start: 20120214, end: 20120228
  5. PEGINTRON [Suspect]
     Indication: CHRONIC HEPATITIS C
     Route: 058
     Dates: start: 20120117, end: 20120221
  6. ZYLORIC [Suspect]
     Route: 048
     Dates: end: 20120306
  7. MYSER [Concomitant]
     Route: 061
     Dates: start: 20120221
  8. TALION OD [Concomitant]
     Route: 048
     Dates: start: 20120221, end: 20120228
  9. XYZAL [Concomitant]
     Route: 048
     Dates: start: 20120228
  10. MAGMITT [Concomitant]
     Route: 048
     Dates: start: 20120214

REACTIONS (2)
  - Drug reaction with eosinophilia and systemic symptoms [Recovered/Resolved]
  - Anaemia [Not Recovered/Not Resolved]
